FAERS Safety Report 4541841-X (Version None)
Quarter: 2004Q4

REPORT INFORMATION
  Report Type: 
  Country: None (occurrence: None)
  Receive Date: 20041227
  Receipt Date: 20041213
  Transmission Date: 20050328
  Serious: Yes (Hospitalization)
  Sender: FDA-Public Use
  Company Number: MK200412-0303-1

PATIENT
  Age: 35 Year
  Sex: Male

DRUGS (8)
  1. ANAFRANIL [Suspect]
     Indication: DEPRESSION
     Dosage: 150-225MG, DAILY
  2. MAPROTILINE HCL [Suspect]
     Indication: DEPRESSION
     Dosage: 150MG
  3. AMOXAPINE [Concomitant]
  4. CARBAMAZEPINE [Concomitant]
  5. FLUVOXAMINE MALEATE [Concomitant]
  6. NORTRIPTYLINE HCL [Concomitant]
  7. SULPIRIDE [Concomitant]
  8. VALPROATE SODIUM [Concomitant]

REACTIONS (3)
  - ABULIA [None]
  - DRUG INEFFECTIVE [None]
  - GRAND MAL CONVULSION [None]
